FAERS Safety Report 26196962 (Version 1)
Quarter: 2025Q4

REPORT INFORMATION
  Report Type: Spontaneous
  Country: US (occurrence: US)
  Receive Date: 20251224
  Receipt Date: 20251224
  Transmission Date: 20260118
  Serious: Yes (Other)
  Sender: GLENMARK
  Company Number: US-MLMSERVICE-20251204-PI739834-00232-1

PATIENT
  Age: 71 Year
  Sex: Male

DRUGS (4)
  1. TACROLIMUS [Suspect]
     Active Substance: TACROLIMUS
     Indication: Immunosuppressant drug therapy
     Dosage: UNK
     Route: 065
  2. MYCOPHENOLIC ACID [Suspect]
     Active Substance: MYCOPHENOLIC ACID
     Indication: Immunosuppressant drug therapy
     Dosage: UNK
     Route: 065
  3. PREDNISONE [Suspect]
     Active Substance: PREDNISONE
     Indication: Immunosuppressant drug therapy
     Dosage: UNK
     Route: 065
  4. THYMOCYTE IMMUNE GLOBULIN NOS [Suspect]
     Active Substance: THYMOCYTE IMMUNE GLOBULIN NOS
     Indication: Immunosuppressant drug therapy
     Dosage: UNK
     Route: 065

REACTIONS (9)
  - Duodenal ulcer [Not Recovered/Not Resolved]
  - Pulmonary oedema [Not Recovered/Not Resolved]
  - Haematemesis [Not Recovered/Not Resolved]
  - Gastritis [Not Recovered/Not Resolved]
  - Oesophagitis [Not Recovered/Not Resolved]
  - Encephalopathy [Not Recovered/Not Resolved]
  - Respiratory distress [Not Recovered/Not Resolved]
  - Pneumonia [Not Recovered/Not Resolved]
  - Disseminated strongyloidiasis [Not Recovered/Not Resolved]
